FAERS Safety Report 10185982 (Version 2)
Quarter: 2014Q3

REPORT INFORMATION
  Report Type: Spontaneous
  Country: JP (occurrence: JP)
  Receive Date: 20140521
  Receipt Date: 20140729
  Transmission Date: 20150326
  Serious: Yes (Hospitalization)
  Sender: FDA-Public Use
  Company Number: JP-PFIZER INC-2014133576

PATIENT
  Age: 64 Year
  Sex: Male
  Weight: 49.3 kg

DRUGS (3)
  1. THYRADIN-S [Concomitant]
     Active Substance: LEVOTHYROXINE
     Route: 048
  2. AMLODIPINE OD ^^MEIJI^^ [Concomitant]
     Route: 048
  3. SUTENT [Suspect]
     Active Substance: SUNITINIB MALATE
     Indication: RENAL CANCER METASTATIC
     Dosage: 37.5 MG, 1X/DAY, CYCLIC (2-WEEK ON AND 1-WEEK OFF)
     Route: 048
     Dates: start: 20131125, end: 20140131

REACTIONS (2)
  - Cardiac failure [Recovering/Resolving]
  - Pneumonitis [Recovering/Resolving]

NARRATIVE: CASE EVENT DATE: 20140131
